FAERS Safety Report 3749058 (Version 4)
Quarter: 2015Q2

REPORT INFORMATION
  Report Type: Spontaneous
  Country: JP (occurrence: JP)
  Receive Date: 20020107
  Receipt Date: 20150417
  Transmission Date: 20150821
  Serious: Yes (Death, Life-Threatening, Other)
  Sender: FDA-Public Use
  Company Number: PHBS2001JP13087

PATIENT
  Age: 63 Year
  Sex: Male
  Weight: 65.5 kg

DRUGS (14)
  1. GLIVEC [Suspect]
     Active Substance: IMATINIB MESYLATE
     Dosage: 800 MG/DAY
     Route: 048
     Dates: start: 20020216
  2. NORVASC [Concomitant]
     Active Substance: AMLODIPINE BESYLATE
     Dates: start: 20020111, end: 20020128
  3. GLIVEC [Suspect]
     Active Substance: IMATINIB MESYLATE
     Indication: BLAST CRISIS IN MYELOGENOUS LEUKAEMIA
     Dosage: 600 TO 100 MG/DAY
     Route: 048
     Dates: start: 20011219, end: 20020115
  4. GLIVEC [Suspect]
     Active Substance: IMATINIB MESYLATE
     Dosage: 400 MG/DAY
     Route: 048
     Dates: start: 20020125, end: 20020207
  5. GLIVEC [Suspect]
     Active Substance: IMATINIB MESYLATE
     Route: 048
     Dates: start: 20020216, end: 20020221
  6. GLIVEC [Suspect]
     Active Substance: IMATINIB MESYLATE
     Dosage: 600 MG/DAY
     Route: 048
     Dates: start: 20020208, end: 20020215
  7. GLIVEC [Suspect]
     Active Substance: IMATINIB MESYLATE
     Route: 048
     Dates: start: 20011226, end: 20020115
  8. CYMERIN [Suspect]
     Active Substance: RANIMUSTINE
     Dosage: 50 MG/DAY
     Route: 042
     Dates: start: 20020219, end: 20020219
  9. ALMARL [Concomitant]
     Active Substance: AROTINOLOL HYDROCHLORIDE
     Dates: start: 20020207
  10. GLIVEC [Suspect]
     Active Substance: IMATINIB MESYLATE
     Route: 048
     Dates: start: 20011224, end: 20011225
  11. RENIVACE [Concomitant]
     Active Substance: ENALAPRIL
     Dates: start: 20020129, end: 20020207
  12. GLIVEC [Suspect]
     Active Substance: IMATINIB MESYLATE
     Route: 048
     Dates: start: 20011223, end: 20011223
  13. GLIVEC [Suspect]
     Active Substance: IMATINIB MESYLATE
     Indication: CHRONIC MYELOID LEUKAEMIA
     Dosage: 200 MG/DAY
     Route: 048
     Dates: start: 20020116, end: 20020124
  14. GLIVEC [Suspect]
     Active Substance: IMATINIB MESYLATE
     Route: 048
     Dates: start: 20011219, end: 20011222

REACTIONS (23)
  - Mouth haemorrhage [Recovering/Resolving]
  - Haematemesis [Not Recovered/Not Resolved]
  - Eyelid oedema [Recovering/Resolving]
  - C-reactive protein increased [Not Recovered/Not Resolved]
  - Coma [Fatal]
  - Tumour lysis syndrome [Fatal]
  - Tachycardia [Unknown]
  - Yawning [Unknown]
  - Neutropenia [Not Recovered/Not Resolved]
  - Cerebral haemorrhage [Fatal]
  - Sepsis [Fatal]
  - Haemoglobin decreased [Not Recovered/Not Resolved]
  - Flatulence [Unknown]
  - Pyrexia [Unknown]
  - Cough [Unknown]
  - Pupils unequal [Fatal]
  - Anaemia [Not Recovered/Not Resolved]
  - Diarrhoea [Not Recovered/Not Resolved]
  - Pupillary light reflex tests abnormal [Fatal]
  - Hemiparesis [Fatal]
  - Disseminated intravascular coagulation [Fatal]
  - Thrombocytopenia [Not Recovered/Not Resolved]
  - Gingival bleeding [Not Recovered/Not Resolved]

NARRATIVE: CASE EVENT DATE: 20011223
